FAERS Safety Report 11849747 (Version 4)
Quarter: 2020Q3

REPORT INFORMATION
  Report Type: Spontaneous
  Country: US (occurrence: US)
  Receive Date: 20151218
  Receipt Date: 20200818
  Transmission Date: 20201102
  Serious: Yes (Hospitalization)
  Sender: FDA-Public Use
  Company Number: US-BIOGEN-2015BI155558

PATIENT
  Age: 43 Year
  Sex: Female

DRUGS (3)
  1. TYSABRI [Suspect]
     Active Substance: NATALIZUMAB
     Indication: MULTIPLE SCLEROSIS
     Dosage: INFUSED OVER 1 HOUR
     Route: 042
     Dates: start: 20090921
  2. TYSABRI [Interacting]
     Active Substance: NATALIZUMAB
     Route: 042
     Dates: end: 20151001
  3. TYSABRI [Interacting]
     Active Substance: NATALIZUMAB
     Route: 065
     Dates: start: 20090921, end: 20151120

REACTIONS (3)
  - Jugular vein thrombosis [Recovered/Resolved]
  - Vein disorder [Not Recovered/Not Resolved]
  - Multiple sclerosis relapse [Recovered/Resolved]

NARRATIVE: CASE EVENT DATE: 20151001
